FAERS Safety Report 21631152 (Version 2)
Quarter: 2023Q2

REPORT INFORMATION
  Report Type: Report from Study
  Country: DE (occurrence: DE)
  Receive Date: 20221123
  Receipt Date: 20230424
  Transmission Date: 20230721
  Serious: Yes (Hospitalization)
  Sender: FDA-Public Use
  Company Number: DE-ABBVIE-4209547

PATIENT
  Age: 95 Year
  Sex: Female

DRUGS (4)
  1. RINVOQ [Suspect]
     Active Substance: UPADACITINIB
     Indication: Rheumatoid arthritis
     Dosage: BOTH EVENT END DATE SHOULD BE 2022
     Route: 048
     Dates: start: 202207
  2. METHOTREXATE SODIUM [Concomitant]
     Active Substance: METHOTREXATE SODIUM
     Indication: Rheumatoid arthritis
     Dosage: START DATE BEFORE 20-DEC-2018?STOP DATE BETWEEN 8 JAN 2020 AND 13 JUL 2020
  3. METHOTREXATE SODIUM [Concomitant]
     Active Substance: METHOTREXATE SODIUM
     Indication: Rheumatoid arthritis
     Dosage: START DATE BETWEEN 8 JAN 2020 AND 13 JUL 2020 ?STOP DATE BETWEEN 11 NOV 2020 AND 26 MAY 2021
  4. METHOTREXATE SODIUM [Concomitant]
     Active Substance: METHOTREXATE SODIUM
     Indication: Rheumatoid arthritis
     Dosage: START DATE BETWEEN 11 NOV 2020 AND 26 MAY 2021 ?STOP DATE BETWEEN 6 JUL 2022 AND  9 NOV 2022

REACTIONS (2)
  - Chest pain [Recovered/Resolved]
  - Chest discomfort [Recovered/Resolved]

NARRATIVE: CASE EVENT DATE: 20220811
